FAERS Safety Report 6021466-X (Version None)
Quarter: 2008Q4

REPORT INFORMATION
  Report Type: 
  Country: None (occurrence: None)
  Receive Date: 20081229
  Receipt Date: 20081219
  Transmission Date: 20090506
  Serious: No
  Sender: FDA-Public Use
  Company Number: US-JNJFOC-20081205845

PATIENT
  Sex: Female
  Weight: 81.65 kg

DRUGS (3)
  1. DURAGESIC-100 [Suspect]
     Indication: RHEUMATOID ARTHRITIS
     Route: 062
  2. BIAXIN [Concomitant]
     Indication: SINUSITIS
     Route: 048
  3. ZANAFLEX [Concomitant]
     Route: 048

REACTIONS (1)
  - WRONG TECHNIQUE IN DRUG USAGE PROCESS [None]
